FAERS Safety Report 19126268 (Version 2)
Quarter: 2021Q2

REPORT INFORMATION
  Report Type: Spontaneous
  Country: FR (occurrence: FR)
  Receive Date: 20210412
  Receipt Date: 20210413
  Transmission Date: 20210717
  Serious: Yes (Hospitalization)
  Sender: FDA-Public Use
  Company Number: FR-PFIZER INC-2021369221

PATIENT
  Age: 57 Year
  Sex: Female
  Weight: 59.5 kg

DRUGS (10)
  1. DAFALGAN CODEINE [Concomitant]
     Active Substance: ACETAMINOPHEN\CODEINE PHOSPHATE
     Dosage: 2 G, 1X/DAY
  2. SEROPLEX [Concomitant]
     Active Substance: ESCITALOPRAM OXALATE
     Dosage: 1 DF, 1X/DAY
  3. ALPRAZOLAM. [Concomitant]
     Active Substance: ALPRAZOLAM
     Dosage: 0.5 MG, 1X/DAY
  4. EPLERENONE. [Suspect]
     Active Substance: EPLERENONE
     Indication: STRESS CARDIOMYOPATHY
     Dosage: 25 MG, 1X/DAY
     Route: 048
     Dates: start: 20201114
  5. FUROSEMIDE. [Suspect]
     Active Substance: FUROSEMIDE
     Indication: STRESS CARDIOMYOPATHY
     Dosage: 20 MG, 1X/DAY
     Route: 048
     Dates: start: 20201114
  6. KARDEGIC [Suspect]
     Active Substance: ASPIRIN DL-LYSINE
     Indication: STRESS CARDIOMYOPATHY
     Dosage: 1.25 MG, 1X/DAY
     Route: 048
     Dates: start: 20201114
  7. CARDENSIEL [Suspect]
     Active Substance: BISOPROLOL FUMARATE
     Indication: STRESS CARDIOMYOPATHY
     Dosage: 1.25 MG, 1X/DAY
     Route: 048
     Dates: start: 20201114
  8. RAMIPRIL. [Suspect]
     Active Substance: RAMIPRIL
     Indication: STRESS CARDIOMYOPATHY
     Dosage: 2.5 MG, 1X/DAY
     Route: 048
     Dates: start: 20201114
  9. DAFALGAN CODEINE [Suspect]
     Active Substance: ACETAMINOPHEN\CODEINE PHOSPHATE
     Indication: PAIN
     Dosage: 1 DF, 1X/DAY
     Route: 048
     Dates: end: 20210316
  10. NUCTALON [Concomitant]
     Active Substance: ESTAZOLAM
     Dosage: 1 DF, 1X/DAY

REACTIONS (2)
  - Pancreatitis acute [Recovering/Resolving]
  - Off label use [Unknown]

NARRATIVE: CASE EVENT DATE: 20201114
